FAERS Safety Report 18475368 (Version 21)
Quarter: 2022Q3

REPORT INFORMATION
  Report Type: Report from Study
  Country: CA (occurrence: CA)
  Receive Date: 20201106
  Receipt Date: 20220926
  Transmission Date: 20221026
  Serious: Yes (Hospitalization, Other)
  Sender: FDA-Public Use
  Company Number: CA-PVINTAKE-20200042029

PATIENT
  Age: 60 Year
  Sex: Female
  Weight: 94 kg

DRUGS (51)
  1. TEDUGLUTIDE [Suspect]
     Active Substance: TEDUGLUTIDE
     Indication: Short-bowel syndrome
     Dosage: 4.65 MILLIGRAM, QD
     Route: 065
     Dates: start: 20200310
  2. TEDUGLUTIDE [Suspect]
     Active Substance: TEDUGLUTIDE
     Indication: Short-bowel syndrome
     Dosage: 4.65 MILLIGRAM, QD
     Route: 065
     Dates: start: 20200310
  3. TEDUGLUTIDE [Suspect]
     Active Substance: TEDUGLUTIDE
     Indication: Short-bowel syndrome
     Dosage: 4.65 MILLIGRAM, QD
     Route: 065
     Dates: start: 20200310
  4. TEDUGLUTIDE [Suspect]
     Active Substance: TEDUGLUTIDE
     Indication: Short-bowel syndrome
     Dosage: 4.65 MILLIGRAM, QD
     Route: 065
     Dates: start: 20200310
  5. TEDUGLUTIDE [Suspect]
     Active Substance: TEDUGLUTIDE
     Dosage: 4.65 MILLIGRAM, QD
     Route: 065
     Dates: start: 20200310
  6. TEDUGLUTIDE [Suspect]
     Active Substance: TEDUGLUTIDE
     Dosage: 4.65 MILLIGRAM, QD
     Route: 065
     Dates: start: 20200310
  7. TEDUGLUTIDE [Suspect]
     Active Substance: TEDUGLUTIDE
     Dosage: 4.65 MILLIGRAM, QD
     Route: 065
     Dates: start: 20200310
  8. TEDUGLUTIDE [Suspect]
     Active Substance: TEDUGLUTIDE
     Dosage: 4.65 MILLIGRAM, QD
     Route: 065
     Dates: start: 20200310
  9. TEDUGLUTIDE [Suspect]
     Active Substance: TEDUGLUTIDE
     Dosage: 4.85 MILLIGRAM, QD
     Route: 050
     Dates: start: 20200310
  10. TEDUGLUTIDE [Suspect]
     Active Substance: TEDUGLUTIDE
     Dosage: 4.85 MILLIGRAM, QD
     Route: 050
     Dates: start: 20200310
  11. TEDUGLUTIDE [Suspect]
     Active Substance: TEDUGLUTIDE
     Dosage: 4.85 MILLIGRAM, QD
     Route: 050
     Dates: start: 20200310
  12. TEDUGLUTIDE [Suspect]
     Active Substance: TEDUGLUTIDE
     Dosage: 4.85 MILLIGRAM, QD
     Route: 050
     Dates: start: 20200310
  13. TEDUGLUTIDE [Suspect]
     Active Substance: TEDUGLUTIDE
     Dosage: 4.85 MILLIGRAM, QD
     Route: 065
     Dates: start: 20200310
  14. TEDUGLUTIDE [Suspect]
     Active Substance: TEDUGLUTIDE
     Dosage: 4.85 MILLIGRAM, QD
     Route: 065
     Dates: start: 20200310
  15. TEDUGLUTIDE [Suspect]
     Active Substance: TEDUGLUTIDE
     Dosage: 4.85 MILLIGRAM, QD
     Route: 065
     Dates: start: 20200310
  16. TEDUGLUTIDE [Suspect]
     Active Substance: TEDUGLUTIDE
     Dosage: 4.85 MILLIGRAM, QD
     Route: 065
     Dates: start: 20200310
  17. TEDUGLUTIDE [Suspect]
     Active Substance: TEDUGLUTIDE
     Dosage: 4.85 MILLIGRAM, QD
     Route: 058
     Dates: start: 20200310
  18. TEDUGLUTIDE [Suspect]
     Active Substance: TEDUGLUTIDE
     Dosage: 4.85 MILLIGRAM, QD
     Route: 058
     Dates: start: 20200310
  19. TEDUGLUTIDE [Suspect]
     Active Substance: TEDUGLUTIDE
     Dosage: 4.85 MILLIGRAM, QD
     Route: 058
     Dates: start: 20200310
  20. TEDUGLUTIDE [Suspect]
     Active Substance: TEDUGLUTIDE
     Dosage: 4.85 MILLIGRAM, QD
     Route: 058
     Dates: start: 20200310
  21. OCTREOTIDE ACETATE [Concomitant]
     Active Substance: OCTREOTIDE ACETATE
     Indication: Product used for unknown indication
     Dosage: 120 MILLIGRAM, TID
     Route: 058
  22. NOVORAPID [Concomitant]
     Active Substance: INSULIN ASPART
     Indication: Product used for unknown indication
     Dosage: UNK, QID
     Route: 065
  23. Vitamin b complex w c [Concomitant]
     Indication: Product used for unknown indication
     Dosage: UNK, MONTHLY
     Route: 030
  24. ASPIRIN [Concomitant]
     Active Substance: ASPIRIN
     Indication: Product used for unknown indication
     Dosage: 80 MILLIGRAM, QD
     Route: 065
  25. SYNTHROID [Concomitant]
     Active Substance: LEVOTHYROXINE SODIUM
     Indication: Product used for unknown indication
     Dosage: UNK
     Route: 065
  26. ATORVASTATIN [Concomitant]
     Active Substance: ATORVASTATIN
     Indication: Product used for unknown indication
     Dosage: 40 MILLIGRAM, QD
     Route: 065
  27. ATORVASTATIN [Concomitant]
     Active Substance: ATORVASTATIN
     Dosage: 20 MILLIGRAM
     Route: 065
     Dates: start: 20200324
  28. METFORMIN [Concomitant]
     Active Substance: METFORMIN HYDROCHLORIDE
     Indication: Product used for unknown indication
     Dosage: 1000 MILLIGRAM, BID
     Route: 065
  29. METOPROLOL [Concomitant]
     Active Substance: METOPROLOL
     Indication: Product used for unknown indication
     Dosage: 12.5 MILLIGRAM, QD
     Route: 065
  30. PANTOPRAZOLE [Concomitant]
     Active Substance: PANTOPRAZOLE
     Indication: Product used for unknown indication
     Dosage: 40 MILLIGRAM, BID
     Route: 065
  31. LOPERAMIDE [Concomitant]
     Active Substance: LOPERAMIDE
     Indication: Product used for unknown indication
     Dosage: 4 MILLIGRAM, TID
     Dates: start: 20200707
  32. LOPERAMIDE [Concomitant]
     Active Substance: LOPERAMIDE
     Dosage: 8 MILLIGRAM, TID
     Route: 065
     Dates: start: 20200707
  33. CODEINE [Concomitant]
     Active Substance: CODEINE
     Indication: Arthritis
     Dosage: 30 MILLIGRAM, TID
     Route: 065
  34. VITAMIN D [Concomitant]
     Active Substance: VITAMIN D NOS
     Indication: Product used for unknown indication
     Dosage: 50000 INTERNATIONAL UNIT, QD
     Route: 065
  35. VITAMIN D [Concomitant]
     Active Substance: VITAMIN D NOS
     Dosage: 20000 INTERNATIONAL UNIT
     Route: 065
  36. VITAMIN A [Concomitant]
     Active Substance: VITAMIN A
     Indication: Product used for unknown indication
     Dosage: 20000 INTERNATIONAL UNIT, QD
     Route: 065
  37. VITAMINS [Concomitant]
     Active Substance: VITAMINS
     Indication: Product used for unknown indication
     Dosage: UNK
     Route: 065
  38. ISOTONIC [Concomitant]
     Indication: Product used for unknown indication
     Dosage: UNK
     Route: 065
  39. HERBALS\PLANTAGO OVATA SEED\PLANTAGO SEED [Concomitant]
     Active Substance: HERBALS\PLANTAGO OVATA SEED\PLANTAGO SEED
     Indication: Product used for unknown indication
     Dosage: 2.5 MILLILITER, QD
     Dates: end: 20200531
  40. AMITRIPTYLINE [Concomitant]
     Active Substance: AMITRIPTYLINE
     Indication: Product used for unknown indication
     Dosage: 12.5 MILLIGRAM, QD
     Route: 065
  41. ATIVAN [Concomitant]
     Active Substance: LORAZEPAM
     Indication: Product used for unknown indication
     Dosage: 0.5 MILLIGRAM
     Route: 065
  42. FLUCONAZOLE [Concomitant]
     Active Substance: FLUCONAZOLE
     Indication: Fungal infection
     Dosage: 150 MILLIGRAM, TID
     Route: 065
  43. ECTOSONE [Concomitant]
     Indication: Product used for unknown indication
     Dosage: UNK
     Route: 061
  44. SALINE [Concomitant]
     Active Substance: SODIUM CHLORIDE
     Indication: Product used for unknown indication
     Dosage: 1000 MILLILITER, PRN
     Route: 042
     Dates: end: 20220106
  45. TPN [Concomitant]
     Active Substance: AMINO ACIDS\DEXTROSE\ELECTROLYTES NOS\SOYBEAN OIL
     Indication: Product used for unknown indication
     Dosage: UNK
     Route: 065
     Dates: start: 20150701, end: 20201001
  46. REMICADE [Concomitant]
     Active Substance: INFLIXIMAB
     Indication: Crohn^s disease
     Route: 065
  47. HUMIRA [Concomitant]
     Active Substance: ADALIMUMAB
     Indication: Crohn^s disease
     Route: 065
  48. MAGNESIUM [Concomitant]
     Active Substance: MAGNESIUM
     Indication: Product used for unknown indication
     Dosage: 3 GRAM, QD
     Route: 065
  49. TRESIBA [Concomitant]
     Active Substance: INSULIN DEGLUDEC
     Indication: Product used for unknown indication
     Route: 065
  50. IRBESARTAN [Concomitant]
     Active Substance: IRBESARTAN
     Indication: Product used for unknown indication
     Route: 065
  51. TORADOL [Concomitant]
     Active Substance: KETOROLAC TROMETHAMINE
     Indication: Sciatica
     Dosage: 10 MILLIGRAM, QD
     Route: 065

REACTIONS (47)
  - Small intestinal obstruction [Unknown]
  - Haemorrhage urinary tract [Not Recovered/Not Resolved]
  - Infection [Not Recovered/Not Resolved]
  - Hospitalisation [Recovered/Resolved]
  - Anal abscess [Recovering/Resolving]
  - Haematochezia [Recovering/Resolving]
  - Throat tightness [Unknown]
  - Blood pressure increased [Unknown]
  - Vitamin D decreased [Unknown]
  - Muscle spasms [Unknown]
  - Gastrointestinal polyp [Unknown]
  - Stoma obstruction [Recovering/Resolving]
  - Weight decreased [Not Recovered/Not Resolved]
  - Tooth disorder [Unknown]
  - Stoma complication [Unknown]
  - Fatigue [Unknown]
  - Unevaluable event [Unknown]
  - Vaginal discharge [Recovering/Resolving]
  - Vulvovaginal pain [Unknown]
  - Condition aggravated [Unknown]
  - Vulvovaginal discomfort [Unknown]
  - Crying [Unknown]
  - Peripheral swelling [Recovered/Resolved]
  - Eating disorder [Unknown]
  - Glycosylated haemoglobin increased [Unknown]
  - Pain in extremity [Unknown]
  - Urinary tract infection [Unknown]
  - Drug ineffective [Not Recovered/Not Resolved]
  - Obstruction [Not Recovered/Not Resolved]
  - Sciatica [Unknown]
  - Carpal tunnel syndrome [Not Recovered/Not Resolved]
  - Abnormal faeces [Not Recovered/Not Resolved]
  - Malaise [Not Recovered/Not Resolved]
  - Nausea [Unknown]
  - Weight increased [Not Recovered/Not Resolved]
  - Faeces discoloured [Unknown]
  - Anxiety [Unknown]
  - Abdominal pain upper [Unknown]
  - Chills [Not Recovered/Not Resolved]
  - Abdominal pain [Not Recovered/Not Resolved]
  - Fungal infection [Recovering/Resolving]
  - Gut fermentation syndrome [Recovering/Resolving]
  - Overgrowth bacterial [Recovered/Resolved]
  - Flatulence [Unknown]
  - Diarrhoea [Not Recovered/Not Resolved]
  - Gastrointestinal bacterial overgrowth [Recovered/Resolved]
  - Product dose omission issue [Unknown]

NARRATIVE: CASE EVENT DATE: 20200513
